FAERS Safety Report 9071433 (Version 1)
Quarter: 2013Q1

REPORT INFORMATION
  Report Type: Spontaneous
  Country: US (occurrence: US)
  Receive Date: 20130129
  Receipt Date: 20130129
  Transmission Date: 20140127
  Serious: No
  Sender: FDA-Public Use
  Company Number: US-ABBOTT-12P-163-0928442-00

PATIENT
  Sex: Male
  Weight: 118.04 kg

DRUGS (4)
  1. HUMIRA 40 MG/0.8 ML PEN [Suspect]
     Indication: ANKYLOSING SPONDYLITIS
     Dates: start: 2010
  2. TRAMADOL [Concomitant]
     Indication: PAIN
  3. ARTHROTEC [Concomitant]
     Indication: ANKYLOSING SPONDYLITIS
  4. UNNAMED MEDICATION [Concomitant]
     Indication: HYPERTENSION

REACTIONS (5)
  - Ligament rupture [Not Recovered/Not Resolved]
  - Device malfunction [Unknown]
  - Injection site mass [Unknown]
  - Incorrect dose administered [Unknown]
  - Injection site mass [Not Recovered/Not Resolved]
